FAERS Safety Report 8505038-0 (Version None)
Quarter: 2012Q3

REPORT INFORMATION
  Report Type: 
  Country: None (occurrence: None)
  Receive Date: 20120702
  Receipt Date: 20120614
  Transmission Date: 20120928
  Serious: Yes (Hospitalization)
  Sender: FDA-Public Use
  Company Number: JPI-P-022069

PATIENT
  Age: 78 Year
  Sex: Male
  Weight: 86.1834 kg

DRUGS (2)
  1. XYREM [Suspect]
     Indication: CATAPLEXY
     Dosage: ORAL (GREATER THAN 4 GM TWICE NIGHTLY), ORAL : 8 GM (4 GM,2 IN 1 D), ORAL
     Route: 048
     Dates: start: 20110114
  2. XYREM [Suspect]
     Indication: CATAPLEXY
     Dosage: ORAL (GREATER THAN 4 GM TWICE NIGHTLY), ORAL : 8 GM (4 GM,2 IN 1 D), ORAL
     Route: 048
     Dates: end: 20120610

REACTIONS (17)
  - DYSPHAGIA [None]
  - ABDOMINAL DISCOMFORT [None]
  - BLOOD GLUCOSE INCREASED [None]
  - PARAESTHESIA [None]
  - HYPOAESTHESIA [None]
  - INTERVERTEBRAL DISC PROTRUSION [None]
  - WEIGHT DECREASED [None]
  - PHARYNGEAL OEDEMA [None]
  - FALL [None]
  - COUGH [None]
  - INCREASED UPPER AIRWAY SECRETION [None]
  - ANAEMIA [None]
  - INSOMNIA [None]
  - POST PROCEDURAL COMPLICATION [None]
  - DYSPHONIA [None]
  - RETCHING [None]
  - PAIN IN EXTREMITY [None]
